FAERS Safety Report 4695677-X (Version None)
Quarter: 2005Q2

REPORT INFORMATION
  Report Type: 
  Country: None (occurrence: None)
  Receive Date: 20050616
  Receipt Date: 20050616
  Transmission Date: 20051028
  Serious: Yes (Hospitalization)
  Sender: FDA-Public Use
  Company Number: None

PATIENT
  Age: 66 Year
  Sex: Male
  Weight: 76.8847 kg

DRUGS (12)
  1. BEVACIZUMAB [Suspect]
     Indication: OESOPHAGEAL CARCINOMA
     Dosage: 5 MG/KG DAYS 1, 15
     Dates: start: 20050218, end: 20050401
  2. DOCETAXEL [Suspect]
     Indication: OESOPHAGEAL CARCINOMA
     Dosage: 35 MG/M2 DAYS 1, 8, 15
     Dates: start: 20050218, end: 20050401
  3. AMBIEN [Concomitant]
  4. ATIVAN [Concomitant]
  5. COMPAZINE [Concomitant]
  6. DECADRON [Concomitant]
  7. MAGNESIUM OXIDE [Concomitant]
  8. OXYCODONE HCL [Concomitant]
  9. PERIDEX [Concomitant]
  10. PRILOSEC [Concomitant]
  11. TYLENOL [Concomitant]
  12. ZOFRAN [Concomitant]

REACTIONS (2)
  - ANASTOMOTIC ULCER [None]
  - UPPER GASTROINTESTINAL HAEMORRHAGE [None]
